FAERS Safety Report 19003661 (Version 1)
Quarter: 2021Q1

REPORT INFORMATION
  Report Type: Report from Study
  Country: IT (occurrence: IT)
  Receive Date: 20210312
  Receipt Date: 20210312
  Transmission Date: 20210420
  Serious: Yes (Death, Other)
  Sender: FDA-Public Use
  Company Number: IT-JNJFOC-20210312722

PATIENT

DRUGS (5)
  1. HYDROXYCHLOROQUINE [Suspect]
     Active Substance: HYDROXYCHLOROQUINE
     Indication: COVID-19 PNEUMONIA
     Route: 065
  2. AZITHROMYCIN ANHYDROUS. [Suspect]
     Active Substance: AZITHROMYCIN ANHYDROUS
     Indication: COVID-19 PNEUMONIA
     Dosage: QD FOR 5 DAYS
     Route: 065
  3. CLARITHROMYCIN. [Interacting]
     Active Substance: CLARITHROMYCIN
     Indication: COVID-19 PNEUMONIA
     Route: 065
  4. REZOLSTA [Suspect]
     Active Substance: COBICISTAT\DARUNAVIR ETHANOLATE
     Indication: COVID-19 PNEUMONIA
     Dosage: 800/150 MG FOR 14 DAYS
     Route: 048
  5. HYDROXYCHLOROQUINE [Suspect]
     Active Substance: HYDROXYCHLOROQUINE
     Route: 065

REACTIONS (8)
  - Labelled drug-drug interaction issue [Unknown]
  - Electrocardiogram QT prolonged [Unknown]
  - Product use in unapproved indication [Unknown]
  - Death [Fatal]
  - Drug interaction [Unknown]
  - Drug ineffective [Unknown]
  - Cardiotoxicity [Unknown]
  - Off label use [Unknown]
